FAERS Safety Report 18578112 (Version 1)
Quarter: 2020Q4

REPORT INFORMATION
  Report Type: Report from Study
  Country: SE (occurrence: SE)
  Receive Date: 20201204
  Receipt Date: 20201204
  Transmission Date: 20210114
  Serious: Yes (Other)
  Sender: FDA-Public Use
  Company Number: SE-GW PHARMA-201705SEGW0293

PATIENT

DRUGS (8)
  1. EPIDIOLEX [Suspect]
     Active Substance: CANNABIDIOL
     Dosage: 10 MG/KG, 1119 MILLIGRAM, QD
     Route: 048
     Dates: start: 20170522
  2. ERGENYL [Concomitant]
     Active Substance: VALPROIC ACID
     Indication: EPILEPSY
     Dosage: 750 MILLIGRAM, BID
     Route: 048
     Dates: start: 20061127, end: 2017
  3. FRISIUM [Concomitant]
     Active Substance: CLOBAZAM
     Indication: EPILEPSY
     Dosage: 5 MILLIGRAM, BID
     Route: 048
     Dates: start: 20120117
  4. ERGENYL [Concomitant]
     Active Substance: VALPROIC ACID
     Dosage: 450 MILLIGRAM, BID
     Route: 048
     Dates: start: 2017
  5. FRISIUM [Concomitant]
     Active Substance: CLOBAZAM
     Dosage: 15 MILLIGRAM, QD
     Route: 048
     Dates: start: 20120117
  6. TEMESTA [Concomitant]
     Indication: SEIZURE
     Dosage: 1 MILLIGRAM, PRN
     Route: 048
     Dates: start: 20150714
  7. EPIDIOLEX [Suspect]
     Active Substance: CANNABIDIOL
     Indication: EPILEPSY
     Dosage: 20 MG/KG, 2238 MILLIGRAM, QD
     Route: 048
     Dates: start: 20170503, end: 20170517
  8. EPIDIOLEX [Suspect]
     Active Substance: CANNABIDIOL
     Dosage: 15 MG/KG, 1119 MILLIGRAM, QD
     Route: 048
     Dates: start: 20170518, end: 20170521

REACTIONS (4)
  - Fatigue [Recovered/Resolved]
  - Aspartate aminotransferase increased [Recovered/Resolved]
  - Eosinophil count increased [Recovered/Resolved]
  - Alanine aminotransferase increased [Recovered/Resolved]

NARRATIVE: CASE EVENT DATE: 20170518
